FAERS Safety Report 4844551-4 (Version None)
Quarter: 2005Q4

REPORT INFORMATION
  Report Type: 
  Country: None (occurrence: None)
  Receive Date: 20051129
  Receipt Date: 20051031
  Transmission Date: 20060501
  Serious: Yes (Hospitalization)
  Sender: FDA-Public Use
  Company Number: 219755

PATIENT
  Age: 57 Year
  Sex: Female

DRUGS (18)
  1. AVASTIN [Suspect]
     Indication: COLORECTAL CANCER METASTATIC
     Dosage: 585
  2. CAPECITABINE (CAPECITABINE) [Suspect]
     Indication: COLORECTAL CANCER METASTATIC
     Dosage: SEE IMAGE
     Dates: start: 20050828, end: 20051009
  3. ASPIRIN [Concomitant]
  4. PANTOPRAZOLE SODIUM [Concomitant]
  5. ENOXAPARIN SODIUM (ENOXAPARIN SODIUM) [Concomitant]
  6. DIAMICRON (GLICLAZIDE) [Concomitant]
  7. AUGMENTIN (CLAVULANATE POTASSIUM, AMOXICILLIN) [Concomitant]
  8. NYSTATIN [Concomitant]
  9. CEFTAZIDIME SODIUM [Concomitant]
  10. G-CSF (FILGRASTIM) [Concomitant]
  11. MAXOLON [Concomitant]
  12. LEUCOVORIN CALCIUM [Concomitant]
  13. MORPHINE [Concomitant]
  14. ENOXAPARIN SODIUM [Concomitant]
  15. LIDOCAINE [Concomitant]
  16. PANTOPRAZOLE SODIUM [Concomitant]
  17. AMPICILLIN [Concomitant]
  18. GENTAMICIN [Concomitant]

REACTIONS (8)
  - BLOOD ALBUMIN DECREASED [None]
  - BLOOD ALKALINE PHOSPHATASE INCREASED [None]
  - CREATININE RENAL CLEARANCE DECREASED [None]
  - FEBRILE NEUTROPENIA [None]
  - HAEMOGLOBIN DECREASED [None]
  - PLATELET COUNT INCREASED [None]
  - PROTEIN URINE PRESENT [None]
  - RENAL HAEMORRHAGE [None]
